FAERS Safety Report 11348902 (Version 1)
Quarter: 2015Q3

REPORT INFORMATION
  Report Type: Spontaneous
  Country: US (occurrence: US)
  Receive Date: 20150807
  Receipt Date: 20150807
  Transmission Date: 20151125
  Serious: Yes (Hospitalization, Other)
  Sender: FDA-Public Use
  Company Number: US-AMGEN-USASP2012011459

PATIENT
  Age: 59 Year
  Sex: Female

DRUGS (2)
  1. HUMIRA [Concomitant]
     Active Substance: ADALIMUMAB
     Dosage: UNK
  2. ENBREL [Suspect]
     Active Substance: ETANERCEPT
     Indication: RHEUMATOID ARTHRITIS
     Dosage: 50 MG, QWK
     Route: 065
     Dates: start: 2005

REACTIONS (13)
  - Arthralgia [Not Recovered/Not Resolved]
  - Feeding disorder [Recovered/Resolved]
  - Tooth extraction [Recovered/Resolved]
  - Joint range of motion decreased [Not Recovered/Not Resolved]
  - Hip arthroplasty [Unknown]
  - Rash pruritic [Recovered/Resolved]
  - Musculoskeletal pain [Not Recovered/Not Resolved]
  - Rash erythematous [Recovered/Resolved]
  - Drug ineffective [Not Recovered/Not Resolved]
  - Knee arthroplasty [Unknown]
  - Alopecia [Not Recovered/Not Resolved]
  - Insomnia [Recovered/Resolved]
  - Device issue [Unknown]

NARRATIVE: CASE EVENT DATE: 2010
